FAERS Safety Report 19168142 (Version 1)
Quarter: 2021Q2

REPORT INFORMATION
  Report Type: Spontaneous
  Country: US (occurrence: US)
  Receive Date: 20210422
  Receipt Date: 20210422
  Transmission Date: 20210717
  Serious: No
  Sender: FDA-Public Use
  Company Number: US-DRREDDYS-USA/USA/21/0134638

PATIENT
  Age: 18 Year
  Sex: Female

DRUGS (1)
  1. TADALAFIL. [Suspect]
     Active Substance: TADALAFIL
     Indication: LYMPHATIC DISORDER
     Dosage: BED TIME
     Route: 048

REACTIONS (1)
  - Product use in unapproved indication [Unknown]
